FAERS Safety Report 8078847-2 (Version None)
Quarter: 2012Q1

REPORT INFORMATION
  Report Type: 
  Country: None (occurrence: None)
  Receive Date: 20120124
  Receipt Date: 20120109
  Transmission Date: 20120608
  Serious: Yes (Death)
  Sender: FDA-Public Use
  Company Number: JPI-P-014827

PATIENT
  Age: 33 Year
  Sex: Female

DRUGS (12)
  1. ANTIPARKINSONISM DRUGS [Suspect]
     Indication: PRODUCT USED FOR UNKNOWN INDICATION
     Dates: end: 20070607
  2. SEDATIVE-HYPNOTIC [Suspect]
     Indication: PRODUCT USED FOR UNKNOWN INDICATION
     Dates: end: 20070607
  3. BENZODIAZEPINES [Suspect]
     Indication: PRODUCT USED FOR UNKNOWN INDICATION
     Dates: end: 20070607
  4. XYREM [Suspect]
     Indication: SLEEP DISORDER
     Dosage: 6 GM (3 GM,2 IN 1 D),ORAL ; 9 GM (4.5 GM,2 IN 1 D),ORAL
     Route: 048
     Dates: start: 20060714, end: 20070607
  5. XYREM [Suspect]
     Indication: SLEEP DISORDER
     Dosage: 6 GM (3 GM,2 IN 1 D),ORAL ; 9 GM (4.5 GM,2 IN 1 D),ORAL
     Route: 048
     Dates: start: 20060425
  6. NEUROLEPTICS [Suspect]
     Indication: PRODUCT USED FOR UNKNOWN INDICATION
  7. ANESTHETICS AND THERAPEUTIC GASES [Suspect]
     Indication: PRODUCT USED FOR UNKNOWN INDICATION
     Dates: end: 20070607
  8. OTHER AND UNSPECIFIED DRUGS, MEDICAMENTS, AND BIOLOGICAL SUBSTANCES [Suspect]
     Indication: PRODUCT USED FOR UNKNOWN INDICATION
     Dates: end: 20070607
  9. PSYCHOTROPHIC DRUGS [Suspect]
     Indication: PRODUCT USED FOR UNKNOWN INDICATION
     Dates: end: 20070607
  10. ANTIDEPRESSANTS [Suspect]
     Indication: PRODUCT USED FOR UNKNOWN INDICATION
     Dates: end: 20070607
  11. ANTIEPILEPTIC [Suspect]
     Indication: PRODUCT USED FOR UNKNOWN INDICATION
     Dates: end: 20070607
  12. PHENOTHIAZINE ANTIPSYCHOTICS [Suspect]
     Indication: PRODUCT USED FOR UNKNOWN INDICATION

REACTIONS (1)
  - POISONING [None]
